FAERS Safety Report 7146472-3 (Version None)
Quarter: 2010Q4

REPORT INFORMATION
  Report Type: 
  Country: None (occurrence: None)
  Receive Date: 20101208
  Receipt Date: 20101129
  Transmission Date: 20110411
  Serious: Yes (Hospitalization)
  Sender: FDA-Public Use
  Company Number: US-CELGENEUS-163-CCAZA-10101391

PATIENT
  Sex: Male
  Weight: 66.738 kg

DRUGS (35)
  1. AZACITIDINE [Suspect]
     Route: 048
     Dates: start: 20100803, end: 20100809
  2. AZACITIDINE [Suspect]
     Route: 048
     Dates: start: 20100928, end: 20101004
  3. MULTI-VITAMINS [Concomitant]
     Indication: VITAMIN SUPPLEMENTATION
     Route: 048
     Dates: start: 20070124
  4. TYLENOL PM [Concomitant]
     Indication: INSOMNIA
     Dosage: 500MG/25MG
     Route: 048
     Dates: start: 20070124
  5. GLUCOSAMINE CHONDROITIN [Concomitant]
     Dosage: 500MG-400 MG
     Route: 048
     Dates: start: 20100217
  6. GINKGO BILOBA [Concomitant]
     Indication: SUPPLEMENTATION THERAPY
     Route: 048
     Dates: start: 20070124
  7. ALEVE (CAPLET) [Concomitant]
     Route: 048
     Dates: start: 20070801
  8. FISH OIL [Concomitant]
     Dosage: 120-180MG
     Route: 048
     Dates: start: 20101013
  9. LYSINE [Concomitant]
     Indication: SUPPLEMENTATION THERAPY
     Route: 048
     Dates: start: 20100217
  10. OMEPRAZOLE [Concomitant]
     Route: 048
     Dates: start: 20100217
  11. GABAPENTIN [Concomitant]
     Route: 048
     Dates: start: 20100217
  12. LORAZEPAM [Concomitant]
     Indication: INSOMNIA
     Route: 048
     Dates: start: 20070622
  13. AUGMENTIN [Concomitant]
     Indication: INFECTION PROPHYLAXIS
     Route: 048
     Dates: start: 20100713, end: 20100803
  14. AUGMENTIN [Concomitant]
     Indication: UPPER RESPIRATORY TRACT INFECTION
     Route: 048
     Dates: start: 20100909
  15. VALTREX [Concomitant]
     Indication: PROPHYLAXIS
     Route: 048
     Dates: start: 20100218
  16. PREDNISONE [Concomitant]
     Route: 048
  17. PREDNISONE [Concomitant]
     Indication: PAIN
     Route: 048
     Dates: start: 20100602, end: 20100728
  18. PREDNISONE [Concomitant]
     Indication: ARTHRITIS
     Route: 048
     Dates: start: 20100728, end: 20100908
  19. PREDNISONE [Concomitant]
     Route: 048
     Dates: start: 20100913
  20. MARINOL [Concomitant]
     Indication: DECREASED APPETITE
     Route: 048
     Dates: start: 20100616
  21. EXJADE [Concomitant]
     Indication: IRON OVERLOAD
     Route: 048
     Dates: start: 20100623, end: 20100928
  22. PROCHLORPERAZINE MALEATE [Concomitant]
     Indication: NAUSEA
     Route: 048
     Dates: start: 20100803
  23. DOCOSAHEXANOIC ACID [Concomitant]
     Indication: SUPPLEMENTATION THERAPY
     Dosage: 120/180 MG
     Route: 048
     Dates: start: 20070801
  24. LEVOFLOXACIN [Concomitant]
     Indication: INFECTION
     Route: 048
     Dates: start: 20101019
  25. LEVOFLOXACIN [Concomitant]
     Route: 048
     Dates: start: 20101001
  26. RED BLOOD CELLS [Concomitant]
     Dosage: 2 UNITS
     Route: 051
     Dates: start: 20101013, end: 20101013
  27. NAPROXEN [Concomitant]
     Route: 048
     Dates: start: 20070801
  28. ACETAMINOPHEN/DPHYRAM [Concomitant]
     Indication: INSOMNIA
     Dosage: 500/25MG
     Route: 048
     Dates: start: 20070124
  29. DIFLUCAN [Concomitant]
     Indication: PROPHYLAXIS
     Route: 048
     Dates: start: 20100714, end: 20100728
  30. TRAMADOL [Concomitant]
     Route: 048
     Dates: start: 20100602, end: 20100714
  31. IBUPROFEN [Concomitant]
     Route: 048
     Dates: start: 20100602, end: 20100714
  32. TERAZOSIN HCL [Concomitant]
     Indication: HYPERTENSION
     Route: 048
     Dates: start: 20100118, end: 20100714
  33. DRONABINOL [Concomitant]
     Indication: APPETITE DISORDER
     Route: 048
     Dates: start: 20100616
  34. FEXOFENADINE HCL [Concomitant]
     Indication: RHINITIS
     Route: 048
     Dates: start: 20100623, end: 20100714
  35. DEFERASIROX [Concomitant]
     Indication: IRON OVERLOAD
     Route: 048
     Dates: start: 20100623, end: 20100928

REACTIONS (2)
  - CHILLS [None]
  - NEUTROPENIA [None]
